FAERS Safety Report 25957413 (Version 1)
Quarter: 2025Q4

REPORT INFORMATION
  Report Type: Spontaneous
  Country: US (occurrence: US)
  Receive Date: 20251024
  Receipt Date: 20251024
  Transmission Date: 20260119
  Serious: No
  Sender: MYLAN
  Company Number: US-MYLANLABS-2025M1086412

PATIENT
  Sex: Female

DRUGS (2)
  1. GABAPENTIN [Suspect]
     Active Substance: GABAPENTIN
     Indication: Restless legs syndrome
     Dosage: 300 MILLIGRAM, BID (300 MG 2 HOURS BEFORE BEDTIME AND 300 MG AT BEDTIME)
  2. GABAPENTIN [Suspect]
     Active Substance: GABAPENTIN
     Indication: Pain in extremity

REACTIONS (1)
  - Off label use [Unknown]
